FAERS Safety Report 24630373 (Version 2)
Quarter: 2025Q2

REPORT INFORMATION
  Report Type: Spontaneous
  Country: JP (occurrence: JP)
  Receive Date: 20241118
  Receipt Date: 20250404
  Transmission Date: 20250716
  Serious: Yes (Death, Other)
  Sender: ALEXION PHARMACEUTICALS
  Company Number: JP-ASTRAZENECA-240122088_013120_P_1

PATIENT
  Age: 73 Year
  Weight: 54 kg

DRUGS (6)
  1. DURVALUMAB [Suspect]
     Active Substance: DURVALUMAB
     Indication: Small cell lung cancer
     Dosage: 1500 MILLIGRAM, Q3W
  2. CISPLATIN [Concomitant]
     Active Substance: CISPLATIN
     Indication: Small cell lung cancer
  3. ETOPOSIDE [Concomitant]
     Active Substance: ETOPOSIDE
     Indication: Small cell lung cancer
  4. DECADRON [Concomitant]
     Active Substance: DEXAMETHASONE
  5. APREPITANT [Concomitant]
     Active Substance: APREPITANT
  6. LASIX [Concomitant]
     Active Substance: FUROSEMIDE

REACTIONS (4)
  - Immune-mediated enterocolitis [Fatal]
  - Bacterial translocation [Unknown]
  - Sepsis [Fatal]
  - Off label use [Unknown]
